FAERS Safety Report 13314570 (Version 2)
Quarter: 2017Q1

REPORT INFORMATION
  Report Type: Spontaneous
  Country: US (occurrence: US)
  Receive Date: 20170309
  Receipt Date: 20170331
  Transmission Date: 20170428
  Serious: No
  Sender: FDA-Public Use
  Company Number: US-ACTELION-A-NJ2017-150933

PATIENT
  Age: 33 Year
  Sex: Female

DRUGS (3)
  1. VELETRI [Suspect]
     Active Substance: EPOPROSTENOL
     Indication: PULMONARY ARTERIAL HYPERTENSION
     Dosage: 16 NG/KG, PER MIN
     Route: 042
     Dates: start: 20170213
  2. VELETRI [Suspect]
     Active Substance: EPOPROSTENOL
     Dosage: 13.9 NG/KG, PER MIN
     Route: 042
     Dates: start: 20170227
  3. ADCIRCA [Concomitant]
     Active Substance: TADALAFIL

REACTIONS (3)
  - Dyspnoea exertional [Unknown]
  - Flushing [Unknown]
  - Pregnancy [Unknown]
